FAERS Safety Report 4302506-2 (Version None)
Quarter: 2004Q1

REPORT INFORMATION
  Report Type: 
  Country: None (occurrence: None)
  Receive Date: 20040218
  Receipt Date: 20031205
  Transmission Date: 20041129
  Serious: Yes (Other)
  Sender: FDA-Public Use
  Company Number: PHEH2003US11161

PATIENT
  Age: 59 Year
  Sex: Male
  Weight: 70.7 kg

DRUGS (5)
  1. DIOVAN [Suspect]
     Indication: HYPERTENSION
     Dosage: 160 MG, QD, ORAL
     Route: 048
     Dates: start: 20030217, end: 20030704
  2. ATORVASTATIN CALCIUM [Concomitant]
  3. ROFECOXIB [Concomitant]
  4. BUPROPION HCL [Concomitant]
  5. ASPIRIN [Concomitant]

REACTIONS (4)
  - BLOOD CHOLESTEROL INCREASED [None]
  - BLOOD GLUCOSE INCREASED [None]
  - BLOOD SODIUM DECREASED [None]
  - HYPERKALAEMIA [None]
